FAERS Safety Report 8034058-8 (Version None)
Quarter: 2012Q1

REPORT INFORMATION
  Report Type: 
  Country: None (occurrence: None)
  Receive Date: 20120110
  Receipt Date: 20120103
  Transmission Date: 20120608
  Serious: Yes (Death)
  Sender: FDA-Public Use
  Company Number: CA-JNJFOC-20120100576

PATIENT
  Sex: Male

DRUGS (6)
  1. LASIX [Concomitant]
  2. ASPIRIN [Concomitant]
  3. LIPITOR [Concomitant]
  4. STELARA [Suspect]
     Indication: PSORIASIS
     Route: 058
     Dates: start: 20090101, end: 20111206
  5. PERINDOPRIL ERBUMINE [Concomitant]
  6. BISOPROLOL FUMARATE [Concomitant]

REACTIONS (1)
  - MYOCARDIAL INFARCTION [None]
